FAERS Safety Report 6575364-3 (Version None)
Quarter: 2010Q1

REPORT INFORMATION
  Report Type: 
  Country: None (occurrence: None)
  Receive Date: 20100209
  Receipt Date: 20100126
  Transmission Date: 20100710
  Serious: Yes (Death, Other)
  Sender: FDA-Public Use
  Company Number: DE-GENENTECH-297704

PATIENT

DRUGS (2)
  1. ACTIVASE [Suspect]
     Indication: ISCHAEMIC STROKE
  2. EPOETIN ALFA [Suspect]
     Indication: ISCHAEMIC STROKE
     Dosage: 120000 IU, UNK
     Route: 042

REACTIONS (2)
  - DEATH [None]
  - DRUG INTERACTION [None]
